FAERS Safety Report 9808908 (Version 2)
Quarter: 2014Q1

REPORT INFORMATION
  Report Type: Spontaneous
  Country: US (occurrence: US)
  Receive Date: 20140110
  Receipt Date: 20140114
  Transmission Date: 20141002
  Serious: Yes (Death)
  Sender: FDA-Public Use
  Company Number: US-PFIZER INC-2014007435

PATIENT
  Age: 21 Year
  Sex: Female

DRUGS (5)
  1. VENLAFAXINE HCL [Suspect]
     Dosage: UNK
     Route: 048
  2. ZIPRASIDONE HCL [Suspect]
     Dosage: UNK
     Route: 048
  3. LAMOTRIGINE [Suspect]
     Dosage: UNK
     Route: 048
  4. CLONAZEPAM [Suspect]
     Dosage: UNK
     Route: 048
  5. ZOLPIDEM [Suspect]
     Dosage: UNK
     Route: 048

REACTIONS (3)
  - Death [Fatal]
  - Cardiac arrest [Fatal]
  - Respiratory arrest [Fatal]
